FAERS Safety Report 6275542-7 (Version None)
Quarter: 2009Q3

REPORT INFORMATION
  Report Type: 
  Country: None (occurrence: None)
  Receive Date: 20090721
  Receipt Date: 20090716
  Transmission Date: 20100115
  Serious: Yes (Other)
  Sender: FDA-Public Use
  Company Number: US-GENENTECH-286660

PATIENT
  Age: 11 Year
  Sex: Male

DRUGS (2)
  1. SOMATROPIN [Suspect]
     Indication: BODY HEIGHT BELOW NORMAL
     Route: 065
  2. METFORMIN HCL [Concomitant]
     Indication: INSULIN RESISTANCE

REACTIONS (1)
  - BLOOD CORTICOTROPHIN INCREASED [None]
